FAERS Safety Report 4711654-4 (Version None)
Quarter: 2005Q3

REPORT INFORMATION
  Report Type: 
  Country: None (occurrence: None)
  Receive Date: 20050712
  Receipt Date: 20050401
  Transmission Date: 20060218
  Serious: Yes (Hospitalization)
  Sender: FDA-Public Use
  Company Number: FR-BRISTOL-MYERS SQUIBB COMPANY-12918835

PATIENT
  Age: 63 Year
  Sex: Male

DRUGS (13)
  1. CETUXIMAB [Suspect]
     Indication: METASTATIC SQUAMOUS CELL CARCINOMA
     Route: 041
     Dates: start: 20050221
  2. CISPLATIN [Suspect]
     Indication: METASTATIC SQUAMOUS CELL CARCINOMA
     Route: 042
     Dates: start: 20050222
  3. FLUOROURACIL [Suspect]
     Indication: METASTATIC SQUAMOUS CELL CARCINOMA
     Dates: start: 20050222
  4. METHYLPREDNISOLONE 16MG TAB [Concomitant]
  5. ONDANSETRON [Concomitant]
  6. PRAVASTATIN SODIUM [Concomitant]
  7. LEVOTHYROXINE [Concomitant]
  8. CLOPIDOGREL BISULFATE [Concomitant]
  9. BROMAZEPAM [Concomitant]
  10. OXYBUTYNIN [Concomitant]
  11. OMEPRAZOLE [Concomitant]
  12. OXAZEPAM [Concomitant]
  13. DEXCHLORPHENIRAMINE [Concomitant]

REACTIONS (1)
  - MUCOSAL INFLAMMATION [None]
